FAERS Safety Report 8406644-4 (Version None)
Quarter: 2012Q2

REPORT INFORMATION
  Report Type: 
  Country: None (occurrence: None)
  Receive Date: 20120604
  Receipt Date: 20120525
  Transmission Date: 20120825
  Serious: Yes (Hospitalization, Other)
  Sender: FDA-Public Use
  Company Number: US-ASTELLAS-2012US000448

PATIENT
  Sex: Female
  Weight: 91 kg

DRUGS (5)
  1. VESICARE [Suspect]
     Indication: HYPERTONIC BLADDER
     Dosage: 10 MG, UID/QD
     Route: 048
     Dates: start: 20110601
  2. HYDROXYZINE [Concomitant]
     Indication: SKIN LESION
     Dosage: UNK
     Route: 065
  3. AMBIEN [Concomitant]
     Indication: SLEEP DISORDER
     Dosage: UNK
     Route: 065
  4. CELEBREX [Concomitant]
     Indication: ARTHRITIS
     Dosage: UNK
     Route: 065
  5. LYRICA [Concomitant]
     Indication: PRODUCT USED FOR UNKNOWN INDICATION
     Dosage: UNK
     Route: 065

REACTIONS (4)
  - THERAPEUTIC RESPONSE UNEXPECTED [None]
  - SYSTEMIC LUPUS ERYTHEMATOSUS [None]
  - FIBROMYALGIA [None]
  - FALL [None]
